FAERS Safety Report 6382167-1 (Version None)
Quarter: 2009Q3

REPORT INFORMATION
  Report Type: 
  Country: None (occurrence: None)
  Receive Date: 20090928
  Receipt Date: 20090928
  Transmission Date: 20100115
  Serious: Yes (Other)
  Sender: FDA-Public Use
  Company Number: None

PATIENT
  Sex: Male
  Weight: 101.6057 kg

DRUGS (1)
  1. T.B. SKIN TEST [Suspect]

REACTIONS (6)
  - HYPERHIDROSIS [None]
  - HYPOPHAGIA [None]
  - LOSS OF EMPLOYMENT [None]
  - MALAISE [None]
  - POST PROCEDURAL COMPLICATION [None]
  - PYREXIA [None]
